FAERS Safety Report 4852986-9 (Version None)
Quarter: 2005Q4

REPORT INFORMATION
  Report Type: 
  Country: None (occurrence: None)
  Receive Date: 20051214
  Receipt Date: 20051116
  Transmission Date: 20060501
  Serious: Yes (Hospitalization)
  Sender: FDA-Public Use
  Company Number: SE-NOVOPROD-248737

PATIENT
  Age: 13 Year
  Sex: Male
  Weight: 26 kg

DRUGS (1)
  1. NORDITROPIN VIAL [Suspect]
     Indication: GROWTH RETARDATION
     Dosage: 2.6 MG, QD
     Route: 058
     Dates: start: 19901205, end: 19970301

REACTIONS (1)
  - BONE DEVELOPMENT ABNORMAL [None]
